FAERS Safety Report 17763861 (Version 1)
Quarter: 2020Q2

REPORT INFORMATION
  Report Type: Spontaneous
  Country: US (occurrence: US)
  Receive Date: 20200510
  Receipt Date: 20200510
  Transmission Date: 20200714
  Serious: No
  Sender: FDA-Public Use
  Company Number: US-ASTRAZENECA-2020SE59752

PATIENT
  Sex: Female
  Weight: 104.3 kg

DRUGS (5)
  1. PROTONIX [Concomitant]
     Active Substance: PANTOPRAZOLE SODIUM
  2. ZEGERID [Concomitant]
     Active Substance: OMEPRAZOLE\SODIUM BICARBONATE
  3. ADVIAR [Concomitant]
  4. CARAFATE [Concomitant]
     Active Substance: SUCRALFATE
  5. SYMBICORT [Suspect]
     Active Substance: BUDESONIDE\FORMOTEROL FUMARATE DIHYDRATE
     Indication: ASTHMA
     Dosage: 160/4.5 2 PUFFS BID
     Route: 055
     Dates: start: 2013

REACTIONS (7)
  - Wheezing [Unknown]
  - Off label use [Not Recovered/Not Resolved]
  - Device issue [Unknown]
  - Gastrooesophageal reflux disease [Unknown]
  - Intentional device misuse [Unknown]
  - Osteoporosis [Unknown]
  - Vomiting [Unknown]
